FAERS Safety Report 24223617 (Version 3)
Quarter: 2024Q3

REPORT INFORMATION
  Report Type: Spontaneous
  Country: AT (occurrence: AT)
  Receive Date: 20240819
  Receipt Date: 20240906
  Transmission Date: 20241016
  Serious: Yes (Other)
  Sender: PFIZER
  Company Number: AT-ROCHE-3529786

PATIENT
  Age: 75 Year
  Sex: Female
  Weight: 83 kg

DRUGS (18)
  1. PALBOCICLIB [Suspect]
     Active Substance: PALBOCICLIB
     Indication: Breast cancer metastatic
     Dosage: ON 16/JAN/2024, RECEIVED MOST RECENT DOSE OF 100 MG OF DRUG PRIOR TO AE
     Route: 048
  2. PALBOCICLIB [Suspect]
     Active Substance: PALBOCICLIB
     Dosage: START DATE OF MOST RECENT DOSE OF STUDY DRUG PRIOR TO AE 16/JAN/2024 (100 MG)
     Route: 048
     Dates: start: 20211220
  3. INVESTIGATIONAL PRODUCT [Suspect]
     Active Substance: INVESTIGATIONAL PRODUCT
     Indication: Breast cancer metastatic
     Dosage: START DATE OF MOST RECENT DOSE OF STUDY DRUG (BLINDED LETROZOLE) PRIOR TO AE 21/JAN/2024
     Route: 048
     Dates: start: 20211220
  4. INVESTIGATIONAL PRODUCT [Suspect]
     Active Substance: INVESTIGATIONAL PRODUCT
     Indication: Breast cancer metastatic
     Dosage: START DATE OF MOST RECENT DOSE OF STUDY DRUG (BLINDED GDC-9545) PRIOR TO AE 21/JAN/2024
     Route: 048
     Dates: start: 20211220
  5. CANDESARTAN CILEXETIL [Concomitant]
     Active Substance: CANDESARTAN CILEXETIL
     Indication: Hypertension
     Dosage: 16 MG, 1X/DAY
     Route: 048
     Dates: start: 2020
  6. LEVOTHYROXINE SODIUM [Concomitant]
     Active Substance: LEVOTHYROXINE SODIUM
     Indication: Hypothyroidism
     Dosage: 100 UG, 1X/DAY
     Route: 048
     Dates: start: 2001
  7. CANDAM [Concomitant]
     Indication: Hypertension
     Dosage: 16 MG, 1X/DAY
     Route: 048
     Dates: start: 20220511
  8. CITALOPRAM [Concomitant]
     Active Substance: CITALOPRAM\CITALOPRAM HYDROBROMIDE
     Indication: Depression
     Dosage: 20 MG, 1X/DAY
     Route: 048
     Dates: start: 202009
  9. PULMICORT TURBUHALER [Concomitant]
     Active Substance: BUDESONIDE
     Dosage: 1 INHALATION
     Route: 055
     Dates: start: 20211101
  10. ESOMEPRAZOLE [Concomitant]
     Active Substance: ESOMEPRAZOLE
     Dosage: 40 MG, 1X/DAY
     Route: 048
     Dates: start: 20230520
  11. HYDROMORPHONE HYDROCHLORIDE [Concomitant]
     Active Substance: HYDROMORPHONE HYDROCHLORIDE
     Indication: Pain
     Dosage: 2.6 MG, AS NEEDED
     Route: 048
     Dates: start: 20230814
  12. CHOLECALCIFEROL [Concomitant]
     Active Substance: CHOLECALCIFEROL
     Dosage: 30 DROP, WEEKLY
     Route: 048
     Dates: start: 20230424
  13. TRAZODONE HYDROCHLORIDE [Concomitant]
     Active Substance: TRAZODONE HYDROCHLORIDE
     Indication: Depression
     Dosage: 75 MG, 1X/DAY
     Route: 048
     Dates: start: 202007
  14. POLYETHYLENE GLYCOL 3350\POTASSIUM CHLORIDE\SODIUM BICARBONATE\SODIUM [Concomitant]
     Active Substance: POLYETHYLENE GLYCOL 3350\POTASSIUM CHLORIDE\SODIUM BICARBONATE\SODIUM CHLORIDE
     Indication: Flatulence
     Dosage: 2 OTHER
     Route: 048
     Dates: start: 20220413
  15. AMOXICILLIN\CLAVULANATE POTASSIUM [Concomitant]
     Active Substance: AMOXICILLIN\CLAVULANATE POTASSIUM
     Indication: C-reactive protein increased
     Dosage: FREQ:.5 D;
     Route: 048
     Dates: start: 20240808, end: 20240811
  16. ACETAMINOPHEN [Concomitant]
     Active Substance: ACETAMINOPHEN
     Indication: Pain
     Dosage: 500 MG, AS NEEDED
     Route: 048
  17. AQUATEARS [CARBOMER] [Concomitant]
     Dosage: 1 OTHER
     Route: 047
     Dates: start: 20231128, end: 202405
  18. OXAZEPAM [Concomitant]
     Active Substance: OXAZEPAM
     Indication: Depression
     Dosage: 15 MG, 1X/DAY
     Route: 048
     Dates: start: 1996

REACTIONS (1)
  - Pulmonary embolism [Recovered/Resolved]

NARRATIVE: CASE EVENT DATE: 20240122
